FAERS Safety Report 4269139-8 (Version None)
Quarter: 2004Q1

REPORT INFORMATION
  Report Type: 
  Country: None (occurrence: None)
  Receive Date: 20040108
  Receipt Date: 20031231
  Transmission Date: 20041129
  Serious: Yes (Life-Threatening, Other)
  Sender: FDA-Public Use
  Company Number: HQWYE012905JAN04

PATIENT
  Age: 69 Year
  Sex: Female

DRUGS (3)
  1. TAZOCIN (PIPERACILLIN/TAZOBACTAM, INJECTION) [Suspect]
     Indication: LUNG INFECTION
     Dosage: 4.5 G 1X PER 12 HR
     Route: 042
     Dates: start: 20031227, end: 20031227
  2. TAZOCIN (PIPERACILLIN/TAZOBACTAM, INJECTION) [Suspect]
     Indication: PLEURAL EFFUSION
     Dosage: 4.5 G 1X PER 12 HR
     Route: 042
     Dates: start: 20031227, end: 20031227
  3. HERBAL PREPARATIONS (HERBAL PREPARATIONS) [Concomitant]

REACTIONS (7)
  - BLOOD PRESSURE IMMEASURABLE [None]
  - CHEST DISCOMFORT [None]
  - CYANOSIS [None]
  - DIZZINESS [None]
  - FEELING COLD [None]
  - HEART SOUNDS ABNORMAL [None]
  - TYPE I HYPERSENSITIVITY [None]
